FAERS Safety Report 25896337 (Version 4)
Quarter: 2025Q4

REPORT INFORMATION
  Report Type: Spontaneous
  Country: US (occurrence: US)
  Receive Date: 20251008
  Receipt Date: 20251127
  Transmission Date: 20260117
  Serious: Yes (Hospitalization, Other)
  Sender: ALEXION PHARMACEUTICALS
  Company Number: US-AstraZeneca-CH-00964737AP

PATIENT
  Sex: Male

DRUGS (2)
  1. BREZTRI [Suspect]
     Active Substance: BUDESONIDE\FORMOTEROL\GLYCOPYRROLATE
     Dosage: UNK, BID
     Dates: start: 20250720
  2. BREZTRI [Suspect]
     Active Substance: BUDESONIDE\FORMOTEROL\GLYCOPYRROLATE
     Dosage: 160 MICROGRAM PER INHALATION

REACTIONS (12)
  - Pneumonia [Unknown]
  - Incorrect dose administered [Unknown]
  - Cerebral disorder [Unknown]
  - Back disorder [Not Recovered/Not Resolved]
  - Device delivery system issue [Unknown]
  - Throat cancer [Unknown]
  - Incorrect dose administered by device [Unknown]
  - Wrong technique in product usage process [Unknown]
  - Device issue [Unknown]
  - Product dose omission in error [Unknown]
  - Device defective [Unknown]
  - Device use issue [Unknown]
